FAERS Safety Report 5346913-8 (Version None)
Quarter: 2007Q2

REPORT INFORMATION
  Report Type: 
  Country: None (occurrence: None)
  Receive Date: 20070430
  Receipt Date: 20070427
  Transmission Date: 20071010
  Serious: No
  Sender: FDA-Public Use
  Company Number: A-US2007-14335

PATIENT
  Age: 45 Year
  Sex: Female
  Weight: 54.9 kg

DRUGS (5)
  1. VENTAVIS [Suspect]
     Indication: PULMONARY HYPERTENSION
  2. PROTONIX [Concomitant]
  3. HYDROCHLOROTHIAZIDE [Concomitant]
  4. DIFLUCAN [Concomitant]
  5. ACETAMINOPHEN [Concomitant]

REACTIONS (3)
  - DEPRESSED MOOD [None]
  - FATIGUE [None]
  - HEADACHE [None]
